FAERS Safety Report 8885612 (Version 1)
Quarter: 2012Q4

REPORT INFORMATION
  Report Type: 
  Country: GB (occurrence: GB)
  Receive Date: 20121101
  Receipt Date: 20121101
  Transmission Date: 20130627
  Serious: Yes (Death)
  Sender: FDA-Public Use
  Company Number: GB-PFIZER INC-2012268670

PATIENT
  Age: 67 Year
  Sex: Male

DRUGS (9)
  1. LINEZOLID [Suspect]
     Dosage: 600mg/300ml infusion bags twice daily
     Dates: start: 20120914, end: 20120924
  2. SIMVASTATIN [Concomitant]
     Dosage: 40 mg, 1x/day
  3. SPIRONOLACTONE [Concomitant]
     Dosage: 25 mg, 1x/day
  4. RAMIPRIL [Concomitant]
     Dosage: 5 mg, 1x/day
  5. FUROSEMIDE [Concomitant]
     Dosage: 20 mg, 1x/day
  6. BISOPROLOL [Concomitant]
     Dosage: 10 mg, 1x/day
  7. ISOSORBIDE MONONITRATE [Concomitant]
     Dosage: UNK
  8. RIFAMPICIN [Concomitant]
     Dosage: 600 mg, 2x/day
  9. WARFARIN [Concomitant]
     Dosage: UNK

REACTIONS (4)
  - Thrombocytopenia [Fatal]
  - Diarrhoea [Not Recovered/Not Resolved]
  - Dehydration [Not Recovered/Not Resolved]
  - Malaise [Not Recovered/Not Resolved]
